FAERS Safety Report 8450894-8 (Version None)
Quarter: 2012Q2

REPORT INFORMATION
  Report Type: 
  Country: None (occurrence: None)
  Receive Date: 20120620
  Receipt Date: 20120608
  Transmission Date: 20120825
  Serious: Yes (Hospitalization)
  Sender: FDA-Public Use
  Company Number: CA-FRI-1000027368

PATIENT
  Age: 19 Year
  Sex: Female

DRUGS (6)
  1. ESCITALOPRAM [Suspect]
     Dosage: 0.5 DF
     Route: 048
  2. MACROBID [Suspect]
     Dosage: 200 MG
     Route: 048
  3. DESOGESTREL AND ETHINYL ESTRADIOL [Concomitant]
     Dosage: DAILY DOSE NOT REPORTED
     Route: 048
  4. ESCITALOPRAM [Suspect]
     Dosage: 1 DF
     Route: 048
  5. TRAMADOL HCL [Concomitant]
     Dosage: DAILY DOSE NOT REPORTED
  6. ESCITALOPRAM [Suspect]
     Dosage: 1 DF
     Route: 048

REACTIONS (7)
  - VISUAL IMPAIRMENT [None]
  - URTICARIA [None]
  - GENERALISED ERYTHEMA [None]
  - WHITE BLOOD CELL COUNT INCREASED [None]
  - PRURITUS GENERALISED [None]
  - BLOOD POTASSIUM INCREASED [None]
  - EYE SWELLING [None]
